FAERS Safety Report 16274674 (Version 2)
Quarter: 2019Q2

REPORT INFORMATION
  Report Type: Spontaneous
  Country: TW (occurrence: TW)
  Receive Date: 20190504
  Receipt Date: 20190504
  Transmission Date: 20190711
  Serious: Yes (Other)
  Sender: FDA-Public Use
  Company Number: PHHY2019TW098641

PATIENT
  Age: 66 Year
  Sex: Male

DRUGS (4)
  1. PACLITAXEL. [Concomitant]
     Active Substance: PACLITAXEL
     Indication: MALIGNANT NEOPLASM OF AMPULLA OF VATER
     Route: 065
  2. PEMBROLIZUMAB. [Concomitant]
     Active Substance: PEMBROLIZUMAB
     Indication: MALIGNANT NEOPLASM OF AMPULLA OF VATER
     Dosage: 100 MG, UNK
     Route: 042
  3. PREDNISOLONE. [Suspect]
     Active Substance: PREDNISOLONE
     Dosage: 50 UNK, UNK
     Route: 042
  4. PREDNISOLONE. [Suspect]
     Active Substance: PREDNISOLONE
     Indication: SKIN LESION
     Dosage: 0.5 MG, QD
     Route: 048

REACTIONS (9)
  - Scrotal ulcer [Recovering/Resolving]
  - Skin wound [Recovering/Resolving]
  - Rash erythematous [Recovering/Resolving]
  - Genital discharge [Recovering/Resolving]
  - Skin lesion [Recovering/Resolving]
  - Macule [Recovering/Resolving]
  - Papule [Recovering/Resolving]
  - Condition aggravated [Recovering/Resolving]
  - Hiccups [Unknown]
